FAERS Safety Report 20070185 (Version 1)
Quarter: 2021Q4

REPORT INFORMATION
  Report Type: Spontaneous
  Country: JP (occurrence: JP)
  Receive Date: 20211115
  Receipt Date: 20211115
  Transmission Date: 20220303
  Serious: Yes (Hospitalization, Other)
  Sender: FDA-Public Use
  Company Number: JP-SA-2021SA166950

PATIENT
  Age: 75 Year
  Sex: Female

DRUGS (8)
  1. PREDNISOLONE [Suspect]
     Active Substance: PREDNISOLONE
     Indication: Interstitial lung disease
     Dosage: 30 MG/DAY
     Dates: start: 201802
  2. PREDNISOLONE [Suspect]
     Active Substance: PREDNISOLONE
     Dosage: TAPERED TO 20 MG/DAY
     Dates: start: 201803
  3. PREDNISOLONE [Suspect]
     Active Substance: PREDNISOLONE
     Dosage: TAPERED TO 15 MG/DAY
     Dates: start: 201804
  4. PREDNISOLONE [Suspect]
     Active Substance: PREDNISOLONE
     Dosage: TAPERED TO 10 MG/DAY
     Dates: start: 201805
  5. PREDNISOLONE [Suspect]
     Active Substance: PREDNISOLONE
     Dosage: TAPERED TO 5 MG/DAY
     Dates: start: 201806
  6. OXALIPLATIN [Suspect]
     Active Substance: OXALIPLATIN
     Indication: Colon cancer
     Dosage: UNK UNK, QOW, ELPLAT I.V. INFUSION SOLUTION (OXALIPLATIN) INJECTION
     Route: 041
     Dates: start: 201701, end: 201703
  7. LEVOLEUCOVORIN CALCIUM [Concomitant]
     Active Substance: LEVOLEUCOVORIN CALCIUM
     Indication: Colon cancer
  8. FLUOROURACIL 5 [Concomitant]
     Indication: Hepatocellular carcinoma
     Dosage: UNK
     Dates: start: 201701, end: 201703

REACTIONS (8)
  - Hepatitis [Recovered/Resolved]
  - Hepatic function abnormal [Recovered/Resolved]
  - Jaundice [Recovered/Resolved]
  - Drug reaction with eosinophilia and systemic symptoms [Recovered/Resolved]
  - Rash [Recovered/Resolved]
  - Hepatitis C [Recovered/Resolved]
  - Infection reactivation [Recovered/Resolved]
  - Interstitial lung disease [Recovering/Resolving]

NARRATIVE: CASE EVENT DATE: 20180101
